FAERS Safety Report 25711979 (Version 2)
Quarter: 2025Q3

REPORT INFORMATION
  Report Type: Report from Study
  Country: EU (occurrence: EU)
  Receive Date: 20250821
  Receipt Date: 20250918
  Transmission Date: 20251020
  Serious: Yes (Other)
  Sender: PFIZER
  Company Number: EU-GSK-FR2025GSK102584

PATIENT
  Age: 68 Year
  Sex: Female
  Weight: 63 kg

DRUGS (4)
  1. CARBOPLATIN [Suspect]
     Active Substance: CARBOPLATIN
     Indication: Endometrial cancer recurrent
     Route: 042
     Dates: start: 20250604
  2. PACLITAXEL [Suspect]
     Active Substance: PACLITAXEL
     Indication: Endometrial cancer recurrent
     Route: 042
     Dates: start: 20250604
  3. DOSTARLIMAB [Suspect]
     Active Substance: DOSTARLIMAB
     Indication: Endometrial cancer recurrent
     Route: 042
     Dates: start: 20250604
  4. CORTISONE [Concomitant]
     Active Substance: CORTISONE

REACTIONS (1)
  - Toxic skin eruption [Recovered/Resolved with Sequelae]

NARRATIVE: CASE EVENT DATE: 20250612
